FAERS Safety Report 21269651 (Version 2)
Quarter: 2022Q3

REPORT INFORMATION
  Report Type: Spontaneous
  Country: JP (occurrence: JP)
  Receive Date: 20220830
  Receipt Date: 20220908
  Transmission Date: 20221027
  Serious: Yes (Other)
  Sender: FDA-Public Use
  Company Number: JP-NOVARTISPH-NVSJ2022JP096333

PATIENT
  Age: 88 Year
  Sex: Male

DRUGS (13)
  1. CYCLOSPORINE [Suspect]
     Active Substance: CYCLOSPORINE
     Indication: Necrotising scleritis
     Dosage: 150 MG, QD
     Route: 048
  2. CYCLOSPORINE [Suspect]
     Active Substance: CYCLOSPORINE
     Indication: Immunosuppressant drug therapy
  3. MOXIFLOXACIN HYDROCHLORIDE [Suspect]
     Active Substance: MOXIFLOXACIN HYDROCHLORIDE
     Indication: Necrotising scleritis
     Dosage: QID
     Route: 047
  4. MOXIFLOXACIN HYDROCHLORIDE [Suspect]
     Active Substance: MOXIFLOXACIN HYDROCHLORIDE
     Indication: Antibiotic therapy
  5. METHYLPREDNISOLONE SODIUM SUCCINATE [Suspect]
     Active Substance: METHYLPREDNISOLONE SODIUM SUCCINATE
     Indication: Necrotising scleritis
     Dosage: 500 MG, QD
     Route: 042
  6. BETAMETHASONE SODIUM PHOSPHATE [Suspect]
     Active Substance: BETAMETHASONE SODIUM PHOSPHATE
     Indication: Necrotising scleritis
     Dosage: QID
     Route: 047
  7. BETAMETHASONE SODIUM PHOSPHATE [Suspect]
     Active Substance: BETAMETHASONE SODIUM PHOSPHATE
     Dosage: 8 TIMES A DAY
     Route: 047
  8. TACROLIMUS [Suspect]
     Active Substance: TACROLIMUS
     Indication: Necrotising scleritis
     Dosage: QID
     Route: 047
  9. LEVOFLOXACIN HEMIHYDRATE [Concomitant]
     Active Substance: LEVOFLOXACIN
     Indication: Necrotising scleritis
     Dosage: QID
     Route: 047
  10. CEFMENOXIME HYDROCHLORIDE [Concomitant]
     Active Substance: CEFMENOXIME HYDROCHLORIDE
     Indication: Necrotising scleritis
     Dosage: QID
     Route: 047
  11. TRIAMCINOLONE ACETONIDE [Concomitant]
     Active Substance: TRIAMCINOLONE ACETONIDE
     Indication: Necrotising scleritis
     Dosage: UNK
     Route: 047
  12. PREDNISOLONE [Concomitant]
     Active Substance: PREDNISOLONE
     Indication: Necrotising scleritis
     Dosage: 30 MG, QD
     Route: 048
  13. PREDNISOLONE [Concomitant]
     Active Substance: PREDNISOLONE
     Dosage: 60 MG, QD
     Route: 048

REACTIONS (4)
  - Corneal perforation [Unknown]
  - Keratitis fungal [Recovering/Resolving]
  - Therapeutic product effect incomplete [Unknown]
  - Product use in unapproved indication [Unknown]
